FAERS Safety Report 11838670 (Version 1)
Quarter: 2015Q4

REPORT INFORMATION
  Report Type: Spontaneous
  Country: US (occurrence: US)
  Receive Date: 20151215
  Receipt Date: 20151215
  Transmission Date: 20160305
  Serious: No
  Sender: FDA-Public Use
  Company Number: US-SA-2015SA050610

PATIENT
  Age: 66 Year
  Sex: Male

DRUGS (1)
  1. TAXOTERE [Suspect]
     Active Substance: DOCETAXEL
     Indication: SMALL CELL LUNG CANCER
     Dosage: FORM: INFUSION
     Route: 065

REACTIONS (5)
  - Skin exfoliation [Not Recovered/Not Resolved]
  - Pain in extremity [Recovering/Resolving]
  - Injection site discolouration [Recovering/Resolving]
  - Peripheral swelling [Recovering/Resolving]
  - Blister [Recovering/Resolving]
